FAERS Safety Report 15357899 (Version 2)
Quarter: 2018Q3

REPORT INFORMATION
  Report Type: Spontaneous
  Country: GB (occurrence: GB)
  Receive Date: 20180906
  Receipt Date: 20180911
  Transmission Date: 20181010
  Serious: Yes (Other)
  Sender: FDA-Public Use
  Company Number: PHHY2018GB090127

PATIENT
  Age: 34 Year
  Sex: Female
  Weight: 61 kg

DRUGS (10)
  1. FERROUS GLUCONATE [Concomitant]
     Active Substance: FERROUS GLUCONATE
     Indication: IRON DEFICIENCY
     Dosage: 2 ?G/L, UNK (DOSAGE FORM: UNSPECIFIED, FOR 3 MONTHS)
     Route: 065
     Dates: start: 20151127
  2. LAXIDO [Concomitant]
     Active Substance: POLYETHYLENE GLYCOL 3350\POTASSIUM CHLORIDE\SODIUM BICARBONATE\SODIUM CHLORIDE
     Indication: PRODUCT USED FOR UNKNOWN INDICATION
     Dosage: 2 ?G/L, QD (DOSAGE FORM: SACHET )
     Route: 065
     Dates: start: 20150810
  3. BENADRYL ONE A DAY RELIEF [Suspect]
     Active Substance: CETIRIZINE HYDROCHLORIDE
     Indication: ACNE
     Dosage: UNK UNK, PRN (APPLY ONCE OR TWICE)
     Route: 065
  4. ADCAL [Concomitant]
     Active Substance: CALCIUM CARBONATE
     Indication: PRODUCT USED FOR UNKNOWN INDICATION
     Dosage: 2 ?G/L, QD (DOSAGE FORM: UNSPECIFIED, CUMULATIVE DOSE TO FIRST REACTION: 5431.9165 DOSAGE FORMS)
     Route: 065
     Dates: start: 20110214
  5. ERYTHROMYCIN. [Concomitant]
     Active Substance: ERYTHROMYCIN
     Indication: ACNE
     Dosage: 2 ?G/L, UNK (FOR THREE MONTHS)
     Route: 065
  6. CETIRIZINE HYDROCHLORIDE. [Suspect]
     Active Substance: CETIRIZINE HYDROCHLORIDE
     Indication: PRODUCT USED FOR UNKNOWN INDICATION
     Route: 065
  7. BENZOYL PEROXIDE. [Concomitant]
     Active Substance: BENZOYL PEROXIDE
     Indication: ACNE
     Dosage: UNK UNK, PRN (APPLY ONCE OR TWICE AS REQUIRED)
     Route: 065
  8. HYDROCORTISONE. [Concomitant]
     Active Substance: HYDROCORTISONE
     Indication: PRODUCT USED FOR UNKNOWN INDICATION
     Dosage: 2 ?G/L, QD (DOSAGE FORM: UNSPECIFIED, FOR THREE DAYS)
     Route: 065
     Dates: start: 20180723
  9. CETIRIZINE DIHYDROCHLORIDE [Suspect]
     Active Substance: CETIRIZINE HYDROCHLORIDE
     Indication: PRODUCT USED FOR UNKNOWN INDICATION
     Dosage: UNK
     Route: 065
  10. DOXYCYCLINE. [Concomitant]
     Active Substance: DOXYCYCLINE
     Indication: ACNE
     Dosage: 1 ?G/L, UNK (DOSAGE FORM: UNSPECIFIED, TAKE FOR 3 MONTHS IN ROTATION CUMULATIVE DOSE TO FIRST REACTI
     Route: 065

REACTIONS (1)
  - Angioedema [Recovering/Resolving]

NARRATIVE: CASE EVENT DATE: 20180723
